FAERS Safety Report 14931172 (Version 1)
Quarter: 2018Q2

REPORT INFORMATION
  Report Type: Report from Study
  Country: DE (occurrence: DE)
  Receive Date: 20180524
  Receipt Date: 20180524
  Transmission Date: 20180711
  Serious: Yes (Other)
  Sender: FDA-Public Use
  Company Number: DE-OCTA-GAN05818DE

PATIENT
  Age: 49 Year
  Sex: Female
  Weight: 80 kg

DRUGS (8)
  1. L-THYROXINE [Concomitant]
     Active Substance: LEVOTHYROXINE
     Indication: HYPOTHYROIDISM
     Route: 048
  2. AT10 [Concomitant]
     Indication: HYPOTHYROIDISM
     Dosage: ONCE DAILY
     Route: 048
  3. FORMOLICH [Concomitant]
     Active Substance: FORMOTEROL FUMARATE
     Indication: ASTHMA
     Dosage: 2 PUFFS/DAY
     Route: 055
  4. GAMMANORM [Suspect]
     Active Substance: HUMAN IMMUNOGLOBULIN G
     Indication: IMMUNODEFICIENCY COMMON VARIABLE
     Route: 058
     Dates: start: 20151026
  5. OCTAGAM IMMUNE GLOBULIN (HUMAN) [Suspect]
     Active Substance: HUMAN IMMUNOGLOBULIN G
     Indication: IMMUNODEFICIENCY COMMON VARIABLE
     Route: 042
     Dates: start: 2012, end: 2015
  6. MAGNESIUM FORTE [Concomitant]
     Indication: HYPOMAGNESAEMIA
     Route: 048
  7. GRUENCEF [Concomitant]
     Indication: BACTERIAL INFECTION
     Route: 048
  8. DOXYCYCLINE. [Concomitant]
     Active Substance: DOXYCYCLINE
     Indication: BACTERIAL INFECTION
     Dosage: IRREGULAR INTERVALS STARTING FROM 01-MAY-2016
     Route: 048

REACTIONS (4)
  - Lyme disease [Unknown]
  - Hepatitis B core antibody positive [Not Recovered/Not Resolved]
  - Weight decreased [Unknown]
  - Hepatitis B surface antibody positive [Not Recovered/Not Resolved]

NARRATIVE: CASE EVENT DATE: 201311
